FAERS Safety Report 10931253 (Version 1)
Quarter: 2015Q1

REPORT INFORMATION
  Report Type: Spontaneous
  Country: JP (occurrence: JP)
  Receive Date: 20150319
  Receipt Date: 20150319
  Transmission Date: 20150721
  Serious: Yes (Hospitalization)
  Sender: FDA-Public Use
  Company Number: PHJP2015JP003186

PATIENT

DRUGS (2)
  1. EXELON PATCH [Suspect]
     Active Substance: RIVASTIGMINE
     Dosage: APPLIED 3 PATCHES OF EXELON 4.6 MG/24H (PATCH 5 CM2, 9 MG) (PATCH 15 CM2, 27 MG)
     Route: 062
  2. EXELON PATCH [Suspect]
     Active Substance: RIVASTIGMINE
     Indication: PRODUCT USED FOR UNKNOWN INDICATION
     Dosage: UNK
     Route: 062

REACTIONS (8)
  - Hypothermia [Unknown]
  - Bradycardia [Unknown]
  - Overdose [Unknown]
  - Diarrhoea [Unknown]
  - Drug administration error [Unknown]
  - Product use issue [Unknown]
  - Weight decreased [Unknown]
  - Hypoglycaemia [Unknown]

NARRATIVE: CASE EVENT DATE: 20150304
